FAERS Safety Report 18443932 (Version 1)
Quarter: 2020Q4

REPORT INFORMATION
  Report Type: Spontaneous
  Country: US (occurrence: US)
  Receive Date: 20201030
  Receipt Date: 20201030
  Transmission Date: 20210114
  Serious: Yes (Other)
  Sender: FDA-Public Use
  Company Number: US-REGENERON PHARMACEUTICALS, INC.-2020-83224

PATIENT

DRUGS (1)
  1. PRALUENT [Suspect]
     Active Substance: ALIROCUMAB
     Indication: HYPERCHOLESTEROLAEMIA
     Dosage: 150 MG, Q2W
     Route: 058
     Dates: start: 202001

REACTIONS (3)
  - Injection site bruising [Unknown]
  - Injection site haemorrhage [Unknown]
  - COVID-19 [Unknown]

NARRATIVE: CASE EVENT DATE: 20201002
